FAERS Safety Report 18510533 (Version 2)
Quarter: 2020Q4

REPORT INFORMATION
  Report Type: Report from Study
  Country: US (occurrence: US)
  Receive Date: 20201117
  Receipt Date: 20201119
  Transmission Date: 20210114
  Serious: Yes (Death, Life-Threatening, Hospitalization, Disabling, Other)
  Sender: FDA-Public Use
  Company Number: US-B.I. PHARMACEUTICALS,INC./RIDGEFIELD-2020-BI-061276

PATIENT
  Age: 62 Year
  Sex: Male
  Weight: 156.9 kg

DRUGS (5)
  1. PLACEBO [Suspect]
     Active Substance: UNSPECIFIED INGREDIENT
     Indication: CARDIAC FAILURE ACUTE
     Route: 048
     Dates: start: 20201024, end: 20201106
  2. ALDACTONE [Concomitant]
     Active Substance: SPIRONOLACTONE
     Indication: CARDIAC FAILURE CONGESTIVE
     Route: 048
     Dates: start: 20180511, end: 20201111
  3. FUROSEMIDE. [Concomitant]
     Active Substance: FUROSEMIDE
     Indication: CARDIAC FAILURE CONGESTIVE
     Route: 048
  4. METOPROLOL SUCCINATE. [Concomitant]
     Active Substance: METOPROLOL SUCCINATE
     Indication: CARDIAC FAILURE CONGESTIVE
     Route: 048
  5. AMIODARONE [Concomitant]
     Active Substance: AMIODARONE
     Indication: VENTRICULAR TACHYCARDIA
     Route: 048
     Dates: start: 20200416

REACTIONS (16)
  - Cardiac failure acute [Recovered/Resolved]
  - Spinal cord compression [Fatal]
  - Cauda equina syndrome [Fatal]
  - Acute kidney injury [Fatal]
  - Prostate cancer metastatic [Fatal]
  - Ileus [Fatal]
  - Septic shock [Fatal]
  - Metastatic neoplasm [Fatal]
  - Monoplegia [Fatal]
  - Metastases to bone [Fatal]
  - Pulmonary oedema [Fatal]
  - Metabolic acidosis [Fatal]
  - Cardiac arrest [Recovered/Resolved]
  - Paraplegia [Fatal]
  - Acute respiratory failure [Fatal]
  - Hypotension [Fatal]

NARRATIVE: CASE EVENT DATE: 20201108
